FAERS Safety Report 11872680 (Version 1)
Quarter: 2015Q4

REPORT INFORMATION
  Report Type: Spontaneous
  Country: US (occurrence: US)
  Receive Date: 20151228
  Receipt Date: 20151228
  Transmission Date: 20160305
  Serious: Yes (Other)
  Sender: FDA-Public Use
  Company Number: US-FRI-1000081716

PATIENT
  Sex: Male

DRUGS (1)
  1. ARMOUR THYROID [Suspect]
     Active Substance: THYROID, PORCINE\THYROID, UNSPECIFIED
     Dosage: 60MG

REACTIONS (13)
  - Vomiting [Unknown]
  - Hypoglycaemia [Unknown]
  - Cyanosis [Unknown]
  - Weight increased [Unknown]
  - Drug dose omission [Unknown]
  - Pruritus [Unknown]
  - Migraine [Unknown]
  - Change in seizure presentation [Unknown]
  - Tremor [Unknown]
  - Insomnia [Unknown]
  - Headache [Unknown]
  - Nausea [Unknown]
  - Hypersomnia [Unknown]
